FAERS Safety Report 9607597 (Version 1)
Quarter: 2013Q4

REPORT INFORMATION
  Report Type: Spontaneous
  Country: GB (occurrence: GB)
  Receive Date: 20131009
  Receipt Date: 20131009
  Transmission Date: 20140711
  Serious: Yes (Other)
  Sender: FDA-Public Use
  Company Number: PHFR2013GB005640

PATIENT
  Sex: 0

DRUGS (2)
  1. TEGRETOL [Suspect]
     Indication: EPILEPSY
     Dosage: UNK UKN, UNK
  2. TEGRETOL [Suspect]
     Dosage: 10 DF, UNK
     Dates: start: 20131003

REACTIONS (1)
  - Incorrect dose administered [Unknown]
